FAERS Safety Report 21901630 (Version 3)
Quarter: 2023Q1

REPORT INFORMATION
  Report Type: Spontaneous
  Country: CA (occurrence: CA)
  Receive Date: 20230124
  Receipt Date: 20230225
  Transmission Date: 20230418
  Serious: Yes (Other)
  Sender: FDA-Public Use
  Company Number: CA-CELLTRION INC.-2023CA001352

PATIENT

DRUGS (4)
  1. INFLECTRA [Suspect]
     Active Substance: INFLIXIMAB-DYYB
     Indication: Crohn^s disease
     Dosage: 5 MG/KG, WEEK 0, 2, 6 AND THEN EVERY 8 WEEKS, NOT SIGNED BY MD YET.
     Route: 042
     Dates: start: 20230104
  2. INFLECTRA [Suspect]
     Active Substance: INFLIXIMAB-DYYB
     Dosage: 5 MG/KG, WEEK 0, 2, 6 AND THEN EVERY 8 WEEKS.
     Route: 042
     Dates: start: 20230119
  3. INFLECTRA [Suspect]
     Active Substance: INFLIXIMAB-DYYB
     Dosage: 5 MG/KG, WEEK 0, 2, 6 AND THEN EVERY 8 WEEKS / NOT SIGNED BY MD YET
     Route: 042
     Dates: start: 20230215
  4. PREDNISONE [Concomitant]
     Active Substance: PREDNISONE
     Dosage: UNK, DECREASING DOSE

REACTIONS (6)
  - Rectal haemorrhage [Unknown]
  - Large intestinal ulcer [Unknown]
  - Skin graft [Not Recovered/Not Resolved]
  - Anal fissure [Unknown]
  - Poor venous access [Recovered/Resolved]
  - Poor venous access [Recovered/Resolved]

NARRATIVE: CASE EVENT DATE: 20230101
